FAERS Safety Report 13533429 (Version 2)
Quarter: 2018Q1

REPORT INFORMATION
  Report Type: Report from Study
  Country: AU (occurrence: AU)
  Receive Date: 20170510
  Receipt Date: 20180122
  Transmission Date: 20180508
  Serious: Yes (Hospitalization, Other)
  Sender: FDA-Public Use
  Company Number: AU-TEVA-766798ROM

PATIENT
  Age: 43 Year
  Sex: Female

DRUGS (3)
  1. DESVENLAFAXINE. [Suspect]
     Active Substance: DESVENLAFAXINE
     Dosage: 2800 MG
     Route: 048
  2. IBUPROFEN. [Suspect]
     Active Substance: IBUPROFEN
     Dosage: 9600 MG
     Route: 048
  3. DEXAMFETAMINE [Suspect]
     Active Substance: DEXTROAMPHETAMINE
     Dosage: 30 MG
     Route: 048

REACTIONS (2)
  - Serotonin syndrome [Unknown]
  - Overdose [Unknown]
